FAERS Safety Report 8226298-X (Version None)
Quarter: 2012Q1

REPORT INFORMATION
  Report Type: 
  Country: None (occurrence: None)
  Receive Date: 20120321
  Receipt Date: 20120312
  Transmission Date: 20120608
  Serious: Yes (Hospitalization)
  Sender: FDA-Public Use
  Company Number: JP-MERCK-1202USA02733

PATIENT
  Age: 64 Year
  Sex: Female

DRUGS (3)
  1. FOSAMAX [Suspect]
     Indication: OSTEOPOROSIS
     Route: 048
     Dates: start: 20081127, end: 20120208
  2. MOBIC [Suspect]
     Indication: ARTHRALGIA
     Route: 048
     Dates: start: 20080917
  3. PROTECADIN [Suspect]
     Indication: PROPHYLAXIS
     Route: 048
     Dates: start: 20080917

REACTIONS (1)
  - FEMORAL NECK FRACTURE [None]
